FAERS Safety Report 6450932-8 (Version None)
Quarter: 2009Q4

REPORT INFORMATION
  Report Type: 
  Country: None (occurrence: None)
  Receive Date: 20091123
  Receipt Date: 20091118
  Transmission Date: 20100525
  Serious: Yes (Death, Other)
  Sender: FDA-Public Use
  Company Number: A0806896A

PATIENT
  Age: 85 Year
  Sex: Female

DRUGS (4)
  1. PROMACTA [Suspect]
     Route: 048
     Dates: start: 20090810, end: 20090901
  2. PREDNISONE [Concomitant]
     Indication: IDIOPATHIC THROMBOCYTOPENIC PURPURA
  3. CYCLOPHOSPHAMIDE [Concomitant]
     Indication: IDIOPATHIC THROMBOCYTOPENIC PURPURA
  4. RITUXIMAB [Concomitant]

REACTIONS (14)
  - ANAEMIA [None]
  - CHRONIC LYMPHOCYTIC LEUKAEMIA [None]
  - DRUG INEFFECTIVE [None]
  - FATIGUE [None]
  - GRANULOCYTOPENIA [None]
  - HAEMORRHAGE [None]
  - IMPAIRED HEALING [None]
  - INCREASED TENDENCY TO BRUISE [None]
  - INFECTION [None]
  - LYMPHADENOPATHY [None]
  - PALLOR [None]
  - PYREXIA [None]
  - SEPSIS [None]
  - THROMBOCYTOPENIA [None]
